FAERS Safety Report 9549385 (Version 1)
Quarter: 2013Q3

REPORT INFORMATION
  Report Type: Spontaneous
  Country: DE (occurrence: None)
  Receive Date: 20130919
  Receipt Date: 20130919
  Transmission Date: 20140515
  Serious: Yes (Hospitalization, Congenital Anomaly, Other)
  Sender: FDA-Public Use
  Company Number: GER/GER/13/0034555

PATIENT
  Age: 1 Day
  Sex: Female
  Weight: 3.71 kg

DRUGS (5)
  1. LAMOTRIGINE (LAMOTRIGINE) [Suspect]
     Indication: PRODUCT USED FOR UNKNOWN INDICATION
     Route: 064
     Dates: start: 20070513, end: 20080225
  2. METOPROLOL (METOPROLOL) [Suspect]
     Indication: PRODUCT USED FOR UNKNOWN INDICATION
     Route: 064
  3. QUETIAPINE (QUETIAPINE) [Suspect]
     Indication: PRODUCT USED FOR UNKNOWN INDICATION
     Route: 064
  4. LITHIUM (LITHIUM) [Suspect]
     Route: 064
     Dates: start: 20070513, end: 20080225
  5. AUGMENTIN (AUGMENTIN/00756801/) [Concomitant]

REACTIONS (10)
  - Coarctation of the aorta [None]
  - Congenital aortic valve stenosis [None]
  - Patent ductus arteriosus [None]
  - Atrial septal defect [None]
  - Hypotonia [None]
  - Hypotension [None]
  - Neonatal respiratory distress syndrome [None]
  - Bradycardia [None]
  - Shone complex [None]
  - Maternal drugs affecting foetus [None]
